FAERS Safety Report 4297990-7 (Version None)
Quarter: 2004Q1

REPORT INFORMATION
  Report Type: 
  Country: None (occurrence: None)
  Receive Date: 20040218
  Receipt Date: 20011002
  Transmission Date: 20041129
  Serious: Yes (Other)
  Sender: FDA-Public Use
  Company Number: US-BRISTOL-MYERS SQUIBB COMPANY-11013554

PATIENT
  Age: 44 Year
  Sex: Female

DRUGS (2)
  1. STADOL [Suspect]
     Indication: MIGRAINE
     Route: 045
     Dates: start: 19930922
  2. STADOL [Suspect]
     Indication: PAIN
     Route: 045
     Dates: start: 19930922

REACTIONS (5)
  - BRONCHITIS [None]
  - DEPENDENCE [None]
  - DRUG ADDICT [None]
  - GASTRITIS VIRAL [None]
  - ROAD TRAFFIC ACCIDENT [None]
